FAERS Safety Report 23366939 (Version 2)
Quarter: 2024Q1

REPORT INFORMATION
  Report Type: Other
  Country: JP (occurrence: JP)
  Receive Date: 20240104
  Receipt Date: 20240209
  Transmission Date: 20240409
  Serious: Yes (Life-Threatening, Hospitalization, Other)
  Sender: FDA-Public Use
  Company Number: JP-Merck Healthcare KGaA-2023497256

PATIENT
  Age: 73 Year
  Sex: Female

DRUGS (1)
  1. METGLUCO [Suspect]
     Active Substance: METFORMIN HYDROCHLORIDE
     Indication: Diabetes mellitus
     Route: 048

REACTIONS (5)
  - Lactic acidosis [Recovered/Resolved]
  - Renal disorder [Unknown]
  - Hypotension [Recovering/Resolving]
  - Dehydration [Unknown]
  - Decreased appetite [Unknown]
